FAERS Safety Report 6883987-7 (Version None)
Quarter: 2010Q3

REPORT INFORMATION
  Report Type: 
  Country: None (occurrence: None)
  Receive Date: 20100729
  Receipt Date: 20100723
  Transmission Date: 20110219
  Serious: Yes (Other)
  Sender: FDA-Public Use
  Company Number: GB-GENZYME-CLOF-1000822

PATIENT
  Sex: Male

DRUGS (56)
  1. EVOLTRA [Suspect]
     Indication: ACUTE MYELOID LEUKAEMIA
     Dosage: 40 MG, QDX5
     Route: 042
     Dates: start: 20091210, end: 20091214
  2. DAUNORUBICIN HCL [Suspect]
     Indication: ACUTE MYELOID LEUKAEMIA
     Dosage: 100 MG, QDX5
     Route: 042
     Dates: start: 20091210, end: 20091214
  3. MYLOTARG [Suspect]
     Indication: ACUTE MYELOID LEUKAEMIA
     Dosage: 6 MG, QDX5
     Route: 042
     Dates: start: 20091210, end: 20091214
  4. ACYCLOVIR [Concomitant]
     Indication: ANTIVIRAL PROPHYLAXIS
     Dosage: 400 MG, BID
     Route: 065
     Dates: start: 20091208, end: 20091220
  5. ACYCLOVIR [Concomitant]
     Dosage: 250 MG, BID
     Route: 042
     Dates: start: 20091220, end: 20091231
  6. FLUCONAZOLE [Concomitant]
     Indication: ANTIFUNGAL PROPHYLAXIS
     Dosage: 100 MG, QD
     Route: 065
     Dates: start: 20091208, end: 20091218
  7. ALLOPURINOL [Concomitant]
     Indication: PROPHYLAXIS
     Dosage: 300 MG, QD
     Route: 065
     Dates: start: 20091208, end: 20091220
  8. OMEPRAZOLE [Concomitant]
     Indication: PRODUCT USED FOR UNKNOWN INDICATION
     Dosage: 20 MG, QD
     Route: 065
     Dates: start: 20091208, end: 20091220
  9. ONDANSETRON [Concomitant]
     Indication: NAUSEA
     Dosage: 8 MG, BID
     Route: 065
     Dates: start: 20091210, end: 20091220
  10. ONDANSETRON [Concomitant]
     Dosage: 4 MG, ONCE
     Route: 042
     Dates: start: 20091226, end: 20091226
  11. CYCLIZINE [Concomitant]
     Indication: NAUSEA
     Dosage: 50 MG, TID
     Route: 065
     Dates: start: 20091210, end: 20091223
  12. CYCLIZINE [Concomitant]
     Dosage: 50 MG, ONCE
     Route: 042
     Dates: start: 20091226, end: 20091226
  13. CYCLIZINE [Concomitant]
     Dosage: 50 MG, QD
     Dates: start: 20100110, end: 20100110
  14. MEROPENEM [Concomitant]
     Indication: ANTIBIOTIC THERAPY
     Dosage: 1 G, TID
     Route: 065
     Dates: start: 20091218, end: 20091229
  15. PANTOPRAZOLE [Concomitant]
     Indication: PRODUCT USED FOR UNKNOWN INDICATION
     Dosage: 40 MG, QD
     Route: 042
     Dates: start: 20091220, end: 20091231
  16. CODEINE PHOSPHATE [Concomitant]
     Indication: DIARRHOEA
     Dosage: 60 MG, QD
     Route: 065
     Dates: start: 20091212, end: 20091212
  17. ORAMORPH SR [Concomitant]
     Indication: PAIN
     Dosage: 5 MG, QD
     Route: 065
     Dates: start: 20091213, end: 20091213
  18. ORAMORPH SR [Concomitant]
     Dosage: 5 MG, TID
     Route: 065
     Dates: start: 20091215, end: 20091215
  19. LINEZOLID [Concomitant]
     Indication: ENTEROCOCCAL INFECTION
     Dosage: 600 MG, BID
     Route: 042
     Dates: start: 20091223, end: 20100107
  20. LINEZOLID [Concomitant]
     Dosage: 600 MG, BID
     Route: 042
     Dates: start: 20100116, end: 20100122
  21. VORICONAZOLE [Concomitant]
     Indication: ANTIFUNGAL PROPHYLAXIS
     Dosage: 200 MG, BID
     Route: 042
     Dates: start: 20091223, end: 20091230
  22. VORICONAZOLE [Concomitant]
     Dosage: 400 MG, BID
     Route: 042
     Dates: start: 20091221, end: 20091222
  23. PARACETAMOL [Concomitant]
     Indication: PYREXIA
     Dosage: 1 G, QID
     Route: 042
     Dates: start: 20091226, end: 20091230
  24. PARACETAMOL [Concomitant]
     Indication: PAIN
     Dosage: 1 G, QID
     Route: 048
     Dates: start: 20091226, end: 20091230
  25. PARACETAMOL [Concomitant]
     Dosage: 1 G, QID
     Route: 065
     Dates: start: 20091216, end: 20091222
  26. PARACETAMOL [Concomitant]
     Dosage: 1 G, PRN
     Route: 065
     Dates: start: 20091218, end: 20091222
  27. PARACETAMOL [Concomitant]
     Dosage: 1 G, ONCE
     Route: 065
     Dates: start: 20091224, end: 20091224
  28. LENOGRASTIM [Concomitant]
     Indication: NEUTROPENIA
     Dosage: 263 MCG, QD
     Route: 065
     Dates: start: 20091223
  29. LENOGRASTIM [Concomitant]
     Indication: THROMBOCYTOPENIA
  30. TPN ELECTROLYTES IN PLASTIC CONTAINER [Concomitant]
     Indication: PRODUCT USED FOR UNKNOWN INDICATION
     Dosage: UNK
     Route: 065
     Dates: start: 20091224, end: 20100104
  31. FUROSEMIDE [Concomitant]
     Indication: DIURETIC THERAPY
     Dosage: 20 MG, BID
     Route: 042
     Dates: start: 20091227, end: 20100110
  32. METOCLOPRAMIDE [Concomitant]
     Indication: NAUSEA
     Dosage: 10 MG, TID
     Route: 065
     Dates: start: 20091214, end: 20091217
  33. TAZOCIN [Concomitant]
     Indication: PYREXIA
     Dosage: 4.5 G, TID
     Route: 065
     Dates: start: 20091216, end: 20091218
  34. GENTAMICIN [Concomitant]
     Indication: PYREXIA
     Dosage: 440 MG, QD
     Route: 065
     Dates: start: 20091216, end: 20091218
  35. LACTULOSE [Concomitant]
     Indication: CONSTIPATION
     Dosage: 10 ML, TID
     Route: 065
     Dates: start: 20091214, end: 20091215
  36. CALCICHEW [Concomitant]
     Indication: HYPOCALCAEMIA
     Route: 065
     Dates: start: 20091215, end: 20091223
  37. ABELCET [Concomitant]
     Indication: ANTIFUNGAL PROPHYLAXIS
     Dosage: 100 MG, QD
     Route: 042
     Dates: start: 20091221, end: 20091221
  38. ABELCET [Concomitant]
     Dosage: 100 MG, QD
     Route: 042
     Dates: start: 20100103, end: 20100103
  39. SANDO K [Concomitant]
     Indication: HYPOKALAEMIA
     Dosage: UNK
     Dates: start: 20091222, end: 20091223
  40. AMIKACIN [Concomitant]
     Indication: PYREXIA
     Dosage: 700 MG, QD
     Route: 065
     Dates: start: 20091222, end: 20091223
  41. AMBISOME [Concomitant]
     Indication: ANTIFUNGAL PROPHYLAXIS
     Dosage: UNK
     Route: 042
     Dates: start: 20091222, end: 20091222
  42. CHLORPHENIRAMINE [Concomitant]
     Indication: PRODUCT USED FOR UNKNOWN INDICATION
     Dosage: 4 MG, QD
     Route: 065
     Dates: start: 20091208, end: 20091208
  43. CHLORPHENIRAMINE [Concomitant]
     Dosage: 10 MG, QD
     Route: 065
     Dates: start: 20091210, end: 20091210
  44. CHLORPHENIRAMINE [Concomitant]
     Dosage: 10 MG, QD
     Route: 065
     Dates: start: 20091221, end: 20091221
  45. CHLORPHENIRAMINE [Concomitant]
     Dosage: 10 MG, QD
     Route: 065
     Dates: start: 20091223, end: 20091223
  46. CHLORPHENIRAMINE [Concomitant]
     Dosage: 10 MG, QD
     Route: 042
     Dates: start: 20100103, end: 20100103
  47. TRAMADOL HYDROCHLORIDE [Concomitant]
     Indication: PAIN
     Dosage: 100 MG, QD
     Route: 065
     Dates: start: 20091215, end: 20091215
  48. LOPERAMIDE [Concomitant]
     Indication: DIARRHOEA
     Dosage: 8 MG, QD
     Route: 065
     Dates: start: 20091217, end: 20091222
  49. BUSCOPAN [Concomitant]
     Indication: ABDOMINAL PAIN
     Dosage: 20 MG, PRN
     Route: 042
     Dates: start: 20091220, end: 20091221
  50. MIDAZOLAM HCL [Concomitant]
     Indication: PRODUCT USED FOR UNKNOWN INDICATION
     Dosage: 2 MG, ONCE
     Route: 042
     Dates: start: 20091224, end: 20091224
  51. PABRINEX [Concomitant]
     Indication: PRODUCT USED FOR UNKNOWN INDICATION
     Dosage: UNK
     Route: 065
     Dates: start: 20091223, end: 20091225
  52. FENTANYL [Concomitant]
     Indication: PRODUCT USED FOR UNKNOWN INDICATION
     Dosage: 100 U, ONCE
     Route: 065
     Dates: start: 20091224, end: 20091224
  53. TRANEXAMIC ACID [Concomitant]
     Indication: PRODUCT USED FOR UNKNOWN INDICATION
     Dosage: 600 MG, QD
     Route: 065
     Dates: start: 20100103, end: 20100103
  54. HYDROCORTISON FOR INJECTION [Concomitant]
     Indication: PRODUCT USED FOR UNKNOWN INDICATION
     Dosage: 100 MG, QD
     Route: 042
     Dates: start: 20100103, end: 20100103
  55. PETHIDINE [Concomitant]
     Indication: PRODUCT USED FOR UNKNOWN INDICATION
     Dosage: 25 MG, QD
     Route: 065
     Dates: start: 20100103, end: 20100103
  56. ALBUTEROL [Concomitant]
     Indication: DYSPNOEA
     Dosage: 5 MG, PRN
     Route: 065
     Dates: start: 20091231, end: 20100102

REACTIONS (3)
  - HYPERBILIRUBINAEMIA [None]
  - NEUTROPENIA [None]
  - THROMBOCYTOPENIA [None]
